FAERS Safety Report 23550314 (Version 1)
Quarter: 2024Q1

REPORT INFORMATION
  Report Type: Spontaneous
  Country: US (occurrence: US)
  Receive Date: 20240221
  Receipt Date: 20240221
  Transmission Date: 20240410
  Serious: Yes (Other)
  Sender: FDA-Public Use
  Company Number: US-002147023-NVSC2024US031968

PATIENT
  Age: 60 Year

DRUGS (1)
  1. MAYZENT [Suspect]
     Active Substance: SIPONIMOD
     Indication: Multiple sclerosis
     Dosage: UNK
     Route: 048

REACTIONS (5)
  - Basal cell carcinoma [Recovering/Resolving]
  - Chalazion [Recovering/Resolving]
  - Actinic keratosis [Recovering/Resolving]
  - Vertigo [Not Recovered/Not Resolved]
  - Immune system disorder [Recovering/Resolving]
